FAERS Safety Report 7903115-6 (Version None)
Quarter: 2011Q4

REPORT INFORMATION
  Report Type: 
  Country: None (occurrence: None)
  Receive Date: 20111107
  Receipt Date: 20111025
  Transmission Date: 20120403
  Serious: Yes (Other)
  Sender: FDA-Public Use
  Company Number: B0759762A

PATIENT
  Age: 69 Year
  Sex: Male

DRUGS (5)
  1. ALFUZOSIN HCL [Concomitant]
  2. DUTASTERIDE [Suspect]
     Indication: BENIGN PROSTATIC HYPERPLASIA
  3. ROSUVASTATIN CALCIUM [Concomitant]
  4. LOSARTAN POTASSIUM [Concomitant]
  5. ASPIRIN [Concomitant]

REACTIONS (3)
  - URTICARIA [None]
  - ANGIOEDEMA [None]
  - HEPATIC STEATOSIS [None]
